FAERS Safety Report 10165560 (Version 1)
Quarter: 2014Q2

REPORT INFORMATION
  Report Type: Spontaneous
  Country: US (occurrence: US)
  Receive Date: 20140510
  Receipt Date: 20140510
  Transmission Date: 20141212
  Serious: No
  Sender: FDA-Public Use
  Company Number: US-BRISTOL-MYERS SQUIBB COMPANY-20545836

PATIENT
  Age: 61 Year
  Sex: Male
  Weight: 120.18 kg

DRUGS (4)
  1. BYDUREON [Suspect]
     Indication: TYPE 2 DIABETES MELLITUS
  2. METFORMIN HCL TABS 500MG [Suspect]
  3. LANTUS [Suspect]
     Dosage: 1DF:40UTS
  4. GLIPIZIDE [Suspect]

REACTIONS (3)
  - Diarrhoea [Not Recovered/Not Resolved]
  - Flatulence [Not Recovered/Not Resolved]
  - Blood glucose fluctuation [Unknown]
